FAERS Safety Report 19394529 (Version 1)
Quarter: 2021Q2

REPORT INFORMATION
  Report Type: Spontaneous
  Country: US (occurrence: US)
  Receive Date: 20210609
  Receipt Date: 20210609
  Transmission Date: 20210717
  Serious: No
  Sender: FDA-Public Use
  Company Number: US-SA-2021SA164003

PATIENT

DRUGS (2)
  1. ELIQUIS [Concomitant]
     Active Substance: APIXABAN
     Dosage: UNK
  2. PLAVIX [Suspect]
     Active Substance: CLOPIDOGREL BISULFATE
     Dosage: UNK
     Route: 065

REACTIONS (1)
  - COVID-19 [Unknown]
